FAERS Safety Report 23983831 (Version 2)
Quarter: 2024Q2

REPORT INFORMATION
  Report Type: Spontaneous
  Country: US (occurrence: US)
  Receive Date: 20240618
  Receipt Date: 20240620
  Transmission Date: 20240715
  Serious: No
  Sender: FDA-Public Use
  Company Number: US-002147023-NVSC2024US125600

PATIENT
  Age: 26 Year
  Sex: Female
  Weight: 147 kg

DRUGS (1)
  1. COSENTYX [Suspect]
     Active Substance: SECUKINUMAB
     Indication: Hidradenitis
     Dosage: 300 MG
     Route: 058
     Dates: start: 20240329

REACTIONS (2)
  - Injection site pain [Unknown]
  - Urinary tract infection [Unknown]
